FAERS Safety Report 9259955 (Version 3)
Quarter: 2013Q4

REPORT INFORMATION
  Report Type: Spontaneous
  Country: US (occurrence: US)
  Receive Date: 20130429
  Receipt Date: 20131121
  Transmission Date: 20140711
  Serious: Yes (Other)
  Sender: FDA-Public Use
  Company Number: US-BAYER-2013-050688

PATIENT
  Age: 28 Year
  Sex: Female
  Weight: 131.52 kg

DRUGS (3)
  1. MIRENA [Suspect]
     Indication: CONTRACEPTION
     Dosage: 20 MCG/24HR, CONT
     Route: 015
     Dates: start: 20090522, end: 20120504
  2. CYTOTEC [Concomitant]
     Dosage: UNK, TAKE BEFORE NEXT VISIT
  3. XANAX [Concomitant]
     Dosage: UNK, TAKE BEFORE NEXT VISIT

REACTIONS (18)
  - Uterine perforation [None]
  - Abdominal pain [None]
  - Device difficult to use [None]
  - Injury [None]
  - Pain [None]
  - Discomfort [None]
  - Emotional distress [None]
  - Psychological trauma [None]
  - Mood swings [None]
  - Depression [None]
  - Insomnia [None]
  - Anxiety [None]
  - Appetite disorder [None]
  - Dyspareunia [None]
  - Loss of consciousness [None]
  - Limb discomfort [None]
  - Infertility female [None]
  - Sexual dysfunction [None]
